FAERS Safety Report 7981093-1 (Version None)
Quarter: 2011Q4

REPORT INFORMATION
  Report Type: 
  Country: None (occurrence: None)
  Receive Date: 20111215
  Receipt Date: 20111203
  Transmission Date: 20120403
  Serious: Yes (Hospitalization)
  Sender: FDA-Public Use
  Company Number: VE-PAR PHARMACEUTICAL, INC-2011SCPR003470

PATIENT

DRUGS (6)
  1. IBUPROFEN [Suspect]
     Indication: ODYNOPHAGIA
  2. CEFADROXIL [Suspect]
     Indication: ODYNOPHAGIA
  3. IBUPROFEN [Suspect]
     Indication: ASTHENIA
     Dosage: UNK, UNKNOWN
     Route: 065
  4. IBUPROFEN [Suspect]
     Indication: DYSPHAGIA
  5. CEFADROXIL [Suspect]
     Indication: ASTHENIA
     Dosage: UNK, UNKNOWN
     Route: 065
  6. CEFADROXIL [Suspect]
     Indication: DYSPHAGIA

REACTIONS (1)
  - TOXIC EPIDERMAL NECROLYSIS [None]
